FAERS Safety Report 4986378-9 (Version None)
Quarter: 2006Q2

REPORT INFORMATION
  Report Type: 
  Country: None (occurrence: None)
  Receive Date: 20060428
  Receipt Date: 20060426
  Transmission Date: 20061013
  Serious: Yes (Hospitalization)
  Sender: FDA-Public Use
  Company Number: FR-GLAXOSMITHKLINE-B0421468A

PATIENT
  Age: 76 Year
  Sex: Female

DRUGS (12)
  1. FORTUM [Suspect]
     Dosage: 500MG PER DAY
     Route: 042
     Dates: start: 20060207, end: 20060215
  2. ZYVOXID [Suspect]
     Dosage: 2UNIT PER DAY
     Route: 048
     Dates: end: 20060215
  3. LEDERFOLINE [Concomitant]
     Route: 048
  4. EUCALCIC [Concomitant]
     Route: 065
  5. LASILIX [Concomitant]
     Route: 048
  6. ELISOR [Concomitant]
     Route: 048
  7. AMLOR [Concomitant]
     Route: 065
  8. NEORECORMON [Concomitant]
     Route: 065
  9. CALCIPARINE [Concomitant]
     Route: 065
  10. ROCEPHIN [Concomitant]
     Route: 065
  11. SOLU-MEDROL [Concomitant]
     Route: 065
  12. CIFLOX [Concomitant]
     Route: 065

REACTIONS (2)
  - ANAEMIA [None]
  - THROMBOCYTOPENIA [None]
